FAERS Safety Report 13994611 (Version 4)
Quarter: 2017Q4

REPORT INFORMATION
  Report Type: Report from Study
  Country: None (occurrence: TW)
  Receive Date: 20170921
  Receipt Date: 20171020
  Transmission Date: 20180321
  Serious: Yes (Hospitalization)
  Sender: FDA-Public Use
  Company Number: TW-ABBVIE-17K-153-2106860-00

PATIENT
  Age: 43 Year
  Sex: Male
  Weight: 87 kg

DRUGS (9)
  1. CEFADROXIL. [Concomitant]
     Active Substance: CEFADROXIL
     Indication: ABSCESS
     Route: 048
     Dates: start: 20170520
  2. HUMIRA [Suspect]
     Active Substance: ADALIMUMAB
     Indication: CROHN^S DISEASE
     Route: 058
     Dates: start: 20131008
  3. PROTASE [Concomitant]
     Indication: PANCREATITIS CHRONIC
     Route: 048
     Dates: start: 20170520
  4. MOPRIDE [Concomitant]
     Indication: PEPTIC ULCER
     Route: 048
     Dates: start: 20170520
  5. IMURAN [Concomitant]
     Active Substance: AZATHIOPRINE
     Indication: CROHN^S DISEASE
     Route: 048
     Dates: start: 20170520
  6. FLAGYL [Concomitant]
     Active Substance: METRONIDAZOLE\METRONIDAZOLE HYDROCHLORIDE
     Indication: ABSCESS
     Route: 048
     Dates: start: 20170520
  7. EURODIN [Concomitant]
     Indication: PRODUCT USED FOR UNKNOWN INDICATION
     Route: 048
     Dates: start: 20170520
  8. PENTASA [Concomitant]
     Active Substance: MESALAMINE
     Indication: CROHN^S DISEASE
     Route: 048
     Dates: start: 20170520
  9. PREDNISOLONE. [Concomitant]
     Active Substance: PREDNISOLONE
     Indication: ABSCESS
     Route: 048
     Dates: start: 20170520

REACTIONS (4)
  - Nausea [Recovering/Resolving]
  - Vomiting [Recovering/Resolving]
  - Abdominal distension [Recovering/Resolving]
  - Intestinal obstruction [Recovered/Resolved]

NARRATIVE: CASE EVENT DATE: 20170817
